FAERS Safety Report 21845456 (Version 1)
Quarter: 2023Q1

REPORT INFORMATION
  Report Type: Spontaneous
  Country: CN (occurrence: CN)
  Receive Date: 20230111
  Receipt Date: 20230111
  Transmission Date: 20230418
  Serious: Yes (Hospitalization)
  Sender: FDA-Public Use
  Company Number: CN-drreddys-LIT/CHN/23/0159586

PATIENT
  Age: 71 Year
  Sex: Male

DRUGS (15)
  1. CLOPIDOGREL [Suspect]
     Active Substance: CLOPIDOGREL BISULFATE
     Indication: Essential thrombocythaemia
     Dosage: FOR FIRST 3 WEEKS
  2. CLOPIDOGREL [Suspect]
     Active Substance: CLOPIDOGREL BISULFATE
     Indication: CALR gene mutation
  3. CLOPIDOGREL [Suspect]
     Active Substance: CLOPIDOGREL BISULFATE
     Indication: Ischaemic stroke
  4. HYDROXYUREA [Suspect]
     Active Substance: HYDROXYUREA
     Indication: Essential thrombocythaemia
  5. HYDROXYUREA [Suspect]
     Active Substance: HYDROXYUREA
     Indication: CALR gene mutation
  6. HYDROXYUREA [Suspect]
     Active Substance: HYDROXYUREA
     Indication: Ischaemic stroke
  7. INTERFERON [Suspect]
     Active Substance: INTERFERON
     Indication: Essential thrombocythaemia
  8. INTERFERON [Suspect]
     Active Substance: INTERFERON
     Indication: CALR gene mutation
  9. INTERFERON [Suspect]
     Active Substance: INTERFERON
     Indication: Ischaemic stroke
  10. ANAGRELIDE [Suspect]
     Active Substance: ANAGRELIDE
     Indication: Essential thrombocythaemia
     Dosage: 1-1.5 MG/DAY
  11. ANAGRELIDE [Suspect]
     Active Substance: ANAGRELIDE
     Indication: CALR gene mutation
  12. ANAGRELIDE [Suspect]
     Active Substance: ANAGRELIDE
     Indication: Ischaemic stroke
  13. ASPIRIN [Suspect]
     Active Substance: ASPIRIN
     Indication: Essential thrombocythaemia
  14. ASPIRIN [Suspect]
     Active Substance: ASPIRIN
     Indication: CALR gene mutation
  15. ASPIRIN [Suspect]
     Active Substance: ASPIRIN
     Indication: Ischaemic stroke

REACTIONS (3)
  - Haemorrhagic stroke [Not Recovered/Not Resolved]
  - Cerebral arteriosclerosis [Not Recovered/Not Resolved]
  - Cerebral artery stenosis [Not Recovered/Not Resolved]
